FAERS Safety Report 17961440 (Version 1)
Quarter: 2020Q2

REPORT INFORMATION
  Report Type: Spontaneous
  Country: US (occurrence: US)
  Receive Date: 20200629
  Receipt Date: 20200629
  Transmission Date: 20200714
  Serious: Yes (Other)
  Sender: FDA-Public Use
  Company Number: None

PATIENT
  Age: 65 Year
  Sex: Male
  Weight: 124 kg

DRUGS (1)
  1. 2% CHLORHEXIDINE GLUCONATE CLOTHS [Suspect]
     Active Substance: CHLORHEXIDINE GLUCONATE
     Indication: ANTIBIOTIC PROPHYLAXIS
     Route: 061
     Dates: start: 20200622, end: 20200623

REACTIONS (1)
  - Skin reaction [None]

NARRATIVE: CASE EVENT DATE: 20200623
